FAERS Safety Report 24287009 (Version 7)
Quarter: 2025Q1

REPORT INFORMATION
  Report Type: Report from Study
  Country: AR (occurrence: AR)
  Receive Date: 20240905
  Receipt Date: 20250310
  Transmission Date: 20250409
  Serious: Yes (Hospitalization, Other)
  Sender: NOVARTIS
  Company Number: AR-002147023-NVSC2024AR095417

PATIENT
  Age: 0 Year
  Sex: Female

DRUGS (7)
  1. ZOLGENSMA [Suspect]
     Active Substance: ONASEMNOGENE ABEPARVOVEC-XIOI
     Indication: Spinal muscular atrophy
     Route: 042
     Dates: start: 20240423, end: 20240423
  2. ZOLGENSMA [Suspect]
     Active Substance: ONASEMNOGENE ABEPARVOVEC-XIOI
     Route: 042
  3. PREDNISONE [Concomitant]
     Active Substance: PREDNISONE
     Indication: Product used for unknown indication
     Route: 065
  4. PREDNISONE [Concomitant]
     Active Substance: PREDNISONE
     Dosage: 1.5 MG/KG, QD
     Route: 065
     Dates: start: 20240516
  5. PREDNISONE [Concomitant]
     Active Substance: PREDNISONE
     Dosage: 2 MG/KG, QD
     Route: 065
     Dates: start: 20240523
  6. METHYLPREDNISOLONE [Concomitant]
     Active Substance: METHYLPREDNISOLONE
     Indication: Product used for unknown indication
     Dosage: UNK, BID
     Route: 048
     Dates: start: 202408
  7. METHYLPREDNISOLONE [Concomitant]
     Active Substance: METHYLPREDNISOLONE
     Dosage: UNK, BID (DOSE CHANGED)
     Route: 048
     Dates: start: 202408

REACTIONS (20)
  - Pneumonia [Recovered/Resolved]
  - Dyspnoea [Unknown]
  - Cough [Recovered/Resolved]
  - Lung disorder [Unknown]
  - Bronchiolitis [Recovered/Resolved]
  - Respiratory disorder [Unknown]
  - Oxygen saturation decreased [Unknown]
  - Alanine aminotransferase increased [Recovering/Resolving]
  - Pyrexia [Unknown]
  - Hypothalamic pituitary adrenal axis suppression [Unknown]
  - Acid base balance abnormal [Unknown]
  - Calcium ionised abnormal [Unknown]
  - Troponin T increased [Not Recovered/Not Resolved]
  - Aspartate aminotransferase increased [Recovering/Resolving]
  - Pyrexia [Recovered/Resolved]
  - Hepatic enzyme increased [Unknown]
  - Motor developmental delay [Unknown]
  - Enzyme level decreased [Unknown]
  - Troponin abnormal [Unknown]
  - Transaminases abnormal [Unknown]

NARRATIVE: CASE EVENT DATE: 20240426
